FAERS Safety Report 4317887-3 (Version None)
Quarter: 2004Q1

REPORT INFORMATION
  Report Type: 
  Country: None (occurrence: None)
  Receive Date: 20040316
  Receipt Date: 20040309
  Transmission Date: 20041129
  Serious: Yes (Life-Threatening, Hospitalization)
  Sender: FDA-Public Use
  Company Number: US-BRISTOL-MYERS SQUIBB COMPANY-12528790

PATIENT
  Age: 38 Year
  Sex: Male
  Weight: 65 kg

DRUGS (10)
  1. SUSTIVA [Suspect]
     Indication: HIV INFECTION
     Route: 048
     Dates: start: 20040106
  2. KALETRA [Suspect]
     Indication: HIV INFECTION
     Route: 048
     Dates: start: 20040106
  3. BACTRIM [Suspect]
  4. METHADONE HCL [Concomitant]
  5. MS CONTIN [Concomitant]
  6. NEURONTIN [Concomitant]
  7. CELEXA [Concomitant]
  8. FOLIC ACID [Concomitant]
  9. THIAMINE HCL [Concomitant]
  10. CENTRUM [Concomitant]

REACTIONS (1)
  - THROMBOCYTOPENIA [None]
